FAERS Safety Report 9275702 (Version 1)
Quarter: 2013Q2

REPORT INFORMATION
  Report Type: Spontaneous
  Country: US (occurrence: None)
  Receive Date: 20130502
  Receipt Date: 20130502
  Transmission Date: 20140414
  Serious: Yes (Other)
  Sender: FDA-Public Use
  Company Number: None

PATIENT
  Sex: Male
  Weight: 78.93 kg

DRUGS (1)
  1. LAMICTAL XR [Suspect]
     Route: 048
     Dates: start: 20130329

REACTIONS (3)
  - Convulsion [None]
  - Therapeutic response unexpected with drug substitution [None]
  - Product substitution issue [None]
